FAERS Safety Report 6231797-6 (Version None)
Quarter: 2009Q2

REPORT INFORMATION
  Report Type: 
  Country: None (occurrence: None)
  Receive Date: 20090616
  Receipt Date: 20090610
  Transmission Date: 20091009
  Serious: Yes (Other)
  Sender: FDA-Public Use
  Company Number: PHHY2009CN20345

PATIENT
  Age: 80 Year
  Sex: Male

DRUGS (1)
  1. TEGRETOL [Suspect]
     Indication: NEURALGIA
     Dosage: 200 MG, TID
     Route: 048
     Dates: start: 20090525, end: 20090526

REACTIONS (1)
  - HEART RATE DECREASED [None]
